FAERS Safety Report 8354268-X (Version None)
Quarter: 2012Q2

REPORT INFORMATION
  Report Type: 
  Country: None (occurrence: None)
  Receive Date: 20120511
  Receipt Date: 20120508
  Transmission Date: 20120825
  Serious: Yes (Other)
  Sender: FDA-Public Use
  Company Number: US-PFIZER INC-2012084138

PATIENT

DRUGS (2)
  1. TYLENOL (CAPLET) [Concomitant]
     Indication: PAIN
     Dosage: UNK
  2. IBUPROFEN (ADVIL) [Suspect]
     Dosage: UNK
     Route: 048

REACTIONS (3)
  - CHOKING [None]
  - FOREIGN BODY [None]
  - DYSPHAGIA [None]
